FAERS Safety Report 10021492 (Version 2)
Quarter: 2014Q1

REPORT INFORMATION
  Report Type: Spontaneous
  Country: JP (occurrence: JP)
  Receive Date: 20140319
  Receipt Date: 20140319
  Transmission Date: 20141002
  Serious: Yes (Life-Threatening, Hospitalization, Disabling)
  Sender: FDA-Public Use
  Company Number: JP-BRACCO-006789

PATIENT
  Age: 65 Year
  Sex: Female
  Weight: 38 kg

DRUGS (5)
  1. IOPAMIRON [Suspect]
     Indication: COMPUTERISED TOMOGRAM
     Dosage: DOSE GIVEN AT 2ML/MIN
     Route: 042
     Dates: start: 20130206, end: 20130206
  2. ARTIST [Concomitant]
  3. HALCION [Concomitant]
  4. DIOVAN [Concomitant]
  5. ADALAT [Concomitant]

REACTIONS (2)
  - Anaphylactoid shock [Unknown]
  - Hypoxic-ischaemic encephalopathy [Unknown]
